FAERS Safety Report 7138401-3 (Version None)
Quarter: 2010Q4

REPORT INFORMATION
  Report Type: 
  Country: None (occurrence: None)
  Receive Date: 20101109
  Receipt Date: 20101026
  Transmission Date: 20110411
  Serious: Yes (Other)
  Sender: FDA-Public Use
  Company Number: AEUSA201000399

PATIENT
  Age: 47 Year
  Sex: Female
  Weight: 65.318 kg

DRUGS (11)
  1. GAMUNEX [Suspect]
     Indication: STIFF-MAN SYNDROME
     Dosage: 25 GM; QM; IV
     Route: 042
     Dates: start: 20040101
  2. BENADRYL [Suspect]
     Indication: PREMEDICATION
     Dosage: 25 MG; QM; PO
     Route: 048
     Dates: start: 20040101
  3. BACLOFEN [Concomitant]
  4. CLONAZEPAM [Concomitant]
  5. VITAMINS [Concomitant]
  6. DIGESTIVE ENZYMES [Concomitant]
  7. VITAMIN B-12 [Concomitant]
  8. TYLENOL (CAPLET) [Concomitant]
  9. BENADRYL [Concomitant]
  10. MAGNESIUM [Concomitant]
  11. CALCIUM [Concomitant]

REACTIONS (13)
  - ABDOMINAL DISTENSION [None]
  - ALANINE AMINOTRANSFERASE INCREASED [None]
  - ASPARTATE AMINOTRANSFERASE INCREASED [None]
  - ASTHENIA [None]
  - BLOOD PRESSURE DECREASED [None]
  - DIARRHOEA [None]
  - GASTRIC DISORDER [None]
  - HEADACHE [None]
  - HEPATIC CIRRHOSIS [None]
  - INFUSION RELATED REACTION [None]
  - INJECTION SITE HAEMATOMA [None]
  - INJECTION SITE PAIN [None]
  - SOMNOLENCE [None]
